FAERS Safety Report 9356983 (Version 3)
Quarter: 2014Q1

REPORT INFORMATION
  Report Type: Spontaneous
  Country: KW (occurrence: KW)
  Receive Date: 20130620
  Receipt Date: 20140102
  Transmission Date: 20141002
  Serious: Yes (Hospitalization, Other)
  Sender: FDA-Public Use
  Company Number: KW-009507513-1306KWT007698

PATIENT
  Age: 62 Year
  Sex: Male

DRUGS (4)
  1. PEG-INTRON [Suspect]
     Indication: HEPATITIS C
     Dosage: 120 MICROGRAM, QW
     Route: 058
     Dates: start: 20130406, end: 20130615
  2. REBETOL [Suspect]
     Indication: HEPATITIS C
     Dosage: TOTAL DAILY DOSE 2;
     Route: 048
     Dates: start: 20130406, end: 20130615
  3. BOCEPREVIR [Suspect]
     Indication: HEPATITIS C
     Dosage: TOTAL DAILY DOSE 3;
     Route: 048
     Dates: start: 20130504, end: 20130615
  4. LIPITOR [Concomitant]
     Indication: BLOOD CHOLESTEROL INCREASED
     Dosage: 1 TOTAL DAILY DOSE, QD
     Route: 048
     Dates: end: 20130615

REACTIONS (3)
  - Pancreatitis necrotising [Not Recovered/Not Resolved]
  - Pancreatic pseudocyst [Unknown]
  - Anaemia [Unknown]
